FAERS Safety Report 8082591-5 (Version None)
Quarter: 2012Q1

REPORT INFORMATION
  Report Type: 
  Country: None (occurrence: None)
  Receive Date: 20120127
  Receipt Date: 20110301
  Transmission Date: 20120608
  Serious: No
  Sender: FDA-Public Use
  Company Number: US-ABBOTT-11P-163-0707048-00

PATIENT
  Sex: Female
  Weight: 79.904 kg

DRUGS (15)
  1. PREMARIN [Concomitant]
     Indication: HORMONE REPLACEMENT THERAPY
     Route: 048
  2. OMEPRAZOLE [Concomitant]
     Indication: DYSPEPSIA
     Route: 048
  3. VITAMIN D [Concomitant]
     Indication: VITAMIN SUPPLEMENTATION
     Route: 048
  4. MULTI-VITAMINS [Concomitant]
     Indication: VITAMIN SUPPLEMENTATION
     Route: 048
  5. HUMIRA [Suspect]
     Indication: ANKYLOSING SPONDYLITIS
     Route: 058
     Dates: start: 20110209
  6. OMEPRAZOLE [Concomitant]
     Indication: GASTROOESOPHAGEAL REFLUX DISEASE
  7. METHOTREXATE [Concomitant]
     Indication: ANKYLOSING SPONDYLITIS
     Route: 048
  8. GABAPENTIN [Concomitant]
     Indication: BACK PAIN
     Route: 048
  9. NITROFURANTOIN [Concomitant]
     Indication: CYSTITIS
     Route: 048
  10. NITROFURANTOIN [Concomitant]
     Indication: PROPHYLAXIS
  11. FOLIC ACID [Concomitant]
     Indication: VITAMIN SUPPLEMENTATION
     Route: 048
  12. OMEPRAZOLE [Concomitant]
  13. MELOXICAM [Concomitant]
     Indication: PAIN MANAGEMENT
     Dosage: AS NEEDED
     Route: 048
     Dates: end: 20110101
  14. TEMAZEPAM [Concomitant]
     Indication: INSOMNIA
     Route: 048
  15. CALTRATE + D [Concomitant]
     Indication: VITAMIN SUPPLEMENTATION
     Dosage: 600/?
     Route: 048

REACTIONS (1)
  - NIPPLE PAIN [None]
